FAERS Safety Report 8698041 (Version 3)
Quarter: 2013Q4

REPORT INFORMATION
  Report Type: Spontaneous
  Country: GB (occurrence: GB)
  Receive Date: 20120802
  Receipt Date: 20131031
  Transmission Date: 20140711
  Serious: Yes (Other)
  Sender: FDA-Public Use
  Company Number: GB-009507513-1207GBR001662

PATIENT
  Age: 24 Year
  Sex: Female

DRUGS (2)
  1. NEXPLANON [Suspect]
     Indication: CONTRACEPTION
     Dosage: UNK
     Dates: end: 20120411
  2. NEXPLANON [Suspect]
     Dosage: UNK
     Route: 059
     Dates: start: 20120411, end: 20120611

REACTIONS (4)
  - Excessive granulation tissue [Recovering/Resolving]
  - Contusion [Unknown]
  - Erythema [Unknown]
  - Menorrhagia [Unknown]
